FAERS Safety Report 9294780 (Version 1)
Quarter: 2013Q2

REPORT INFORMATION
  Report Type: Spontaneous
  Country: US (occurrence: US)
  Receive Date: 20130517
  Receipt Date: 20130517
  Transmission Date: 20140414
  Serious: No
  Sender: FDA-Public Use
  Company Number: US-PFIZER INC-2013151504

PATIENT
  Age: 41 Year
  Sex: Female
  Weight: 65.76 kg

DRUGS (3)
  1. VENLAFAXINE HCL [Suspect]
     Indication: ANXIETY
     Dosage: 250 MG, 1X/DAY
     Route: 048
     Dates: end: 20130511
  2. VENLAFAXINE HCL [Suspect]
     Indication: DEPRESSION
     Dosage: 125 MG (CUTTING THE 250MG TABLET AND TAKING ONE HALF) ONCE A DAY
     Route: 048
     Dates: start: 20130512, end: 20130513
  3. XANAX [Concomitant]
     Dosage: UNK

REACTIONS (4)
  - Drug withdrawal syndrome [Not Recovered/Not Resolved]
  - Crying [Not Recovered/Not Resolved]
  - Nausea [Not Recovered/Not Resolved]
  - Swelling [Not Recovered/Not Resolved]
